APPROVED DRUG PRODUCT: ACHROMYCIN V
Active Ingredient: TETRACYCLINE HYDROCHLORIDE
Strength: 125MG/5ML
Dosage Form/Route: SUSPENSION;ORAL
Application: N050263 | Product #002
Applicant: LEDERLE LABORATORIES DIV AMERICAN CYANAMID CO
Approved: Approved Prior to Jan 1, 1982 | RLD: No | RS: No | Type: DISCN